FAERS Safety Report 24319133 (Version 1)
Quarter: 2024Q3

REPORT INFORMATION
  Report Type: Spontaneous
  Country: BR (occurrence: BR)
  Receive Date: 20240913
  Receipt Date: 20240913
  Transmission Date: 20241017
  Serious: Yes (Other)
  Sender: BIOMARIN
  Company Number: BR-SANOFI-02207161

PATIENT

DRUGS (1)
  1. ALDURAZYME [Suspect]
     Active Substance: LARONIDASE
     Indication: Mucopolysaccharidosis I
     Dosage: UNK
     Route: 065

REACTIONS (3)
  - Hydrocephalus [Unknown]
  - Cardiomyopathy [Unknown]
  - Motor developmental delay [Unknown]

NARRATIVE: CASE EVENT DATE: 20240829
